FAERS Safety Report 7128578-8 (Version None)
Quarter: 2010Q4

REPORT INFORMATION
  Report Type: 
  Country: None (occurrence: None)
  Receive Date: 20101130
  Receipt Date: 20101116
  Transmission Date: 20110411
  Serious: Yes (Hospitalization)
  Sender: FDA-Public Use
  Company Number: BR-MEDIMMUNE-MEDI-0011568

PATIENT
  Sex: Female
  Weight: 3.1 kg

DRUGS (11)
  1. SYNAGIS [Suspect]
     Indication: CARDIAC DISORDER
     Route: 030
     Dates: start: 20100730
  2. SYNAGIS [Suspect]
  3. FUROSEMIDE [Concomitant]
     Indication: DIURETIC THERAPY
     Route: 048
     Dates: start: 20100528
  4. FUROSEMIDE [Concomitant]
  5. SPIRONOLACTONE [Concomitant]
     Route: 048
     Dates: start: 20100528
  6. SPIRONOLACTONE [Concomitant]
  7. DIGOXIN [Concomitant]
     Route: 048
     Dates: start: 20100528
  8. VITAMIN AD [Concomitant]
     Indication: VITAMIN SUPPLEMENTATION
     Route: 048
     Dates: start: 20100601
  9. VITAMIN AD [Concomitant]
  10. FERROUS SULFATE [Concomitant]
     Route: 048
     Dates: start: 20100601
  11. ASCORBIC ACID [Concomitant]
     Route: 048
     Dates: start: 20100601

REACTIONS (5)
  - COUGH [None]
  - INFLUENZA [None]
  - PNEUMONIA [None]
  - RHINORRHOEA [None]
  - WHEEZING [None]
